FAERS Safety Report 6284202-8 (Version None)
Quarter: 2009Q3

REPORT INFORMATION
  Report Type: 
  Country: None (occurrence: None)
  Receive Date: 20090722
  Receipt Date: 20090714
  Transmission Date: 20100115
  Serious: Yes (Hospitalization)
  Sender: FDA-Public Use
  Company Number: GXKR2009DE08062

PATIENT
  Age: 47 Year
  Sex: Female
  Weight: 74.6 kg

DRUGS (8)
  1. BISOPROLOL FUMARATE [Suspect]
     Indication: PALPITATIONS
     Dosage: 2.5 MG, QD, ORAL
     Route: 048
     Dates: start: 20080601
  2. PREDNISOLONE [Suspect]
     Indication: MIXED CONNECTIVE TISSUE DISEASE
     Dosage: 5 MG, QD, ORAL
     Route: 048
     Dates: start: 20030101
  3. HYDROXYCHLOROQUINE SULFATE [Suspect]
     Indication: MIXED CONNECTIVE TISSUE DISEASE
     Dosage: 200 MG, BID, ORAL
     Route: 048
     Dates: start: 20030101, end: 20090118
  4. MYDOCALM ^STRATHMANN^ (TOLPERISONE HYDROCHLORIDE) [Suspect]
     Indication: MUSCULOSKELETAL PAIN
     Dosage: 50 MG, BID, ORAL
     Route: 048
     Dates: start: 20080901
  5. OMEPRAZOLE [Concomitant]
  6. MCP ^HEXAL^ (METOCLOPRAMIDE HYDROCHLORIDE) [Concomitant]
  7. IBUHEXAL /00109201/ (IBUPROFEN) [Concomitant]
  8. CALCIMAGON-D3 (CALCIUM CARBONATE, COLECALCIFEROL) [Concomitant]

REACTIONS (1)
  - MYOSITIS [None]
